FAERS Safety Report 19721916 (Version 1)
Quarter: 2021Q3

REPORT INFORMATION
  Report Type: Spontaneous
  Country: FR (occurrence: FR)
  Receive Date: 20210819
  Receipt Date: 20210819
  Transmission Date: 20211014
  Serious: Yes (Death)
  Sender: FDA-Public Use
  Company Number: FR-PFIZER INC-2021633954

PATIENT
  Age: 75 Year
  Sex: Female

DRUGS (2)
  1. PEMBROLIZUMAB. [Suspect]
     Active Substance: PEMBROLIZUMAB
     Indication: PAPILLARY RENAL CELL CARCINOMA
     Dosage: 400 MG, EVERY 6 WEEKS
     Dates: start: 20200706
  2. INLYTA [Suspect]
     Active Substance: AXITINIB
     Indication: PAPILLARY RENAL CELL CARCINOMA
     Dosage: 5 MG, 2X/DAY
     Dates: start: 20200706

REACTIONS (2)
  - Off label use [Unknown]
  - Death [Fatal]

NARRATIVE: CASE EVENT DATE: 20200706
